FAERS Safety Report 11160124 (Version 4)
Quarter: 2015Q3

REPORT INFORMATION
  Report Type: Spontaneous
  Country: US (occurrence: US)
  Receive Date: 20150603
  Receipt Date: 20150806
  Transmission Date: 20151125
  Serious: No
  Sender: FDA-Public Use
  Company Number: US-PFIZER INC-2015173731

PATIENT
  Sex: Female

DRUGS (2)
  1. ADVIL PM [Suspect]
     Active Substance: DIPHENHYDRAMINE CITRATE\IBUPROFEN
     Indication: SLEEP DISORDER
     Dosage: 2 DF, UNK
     Dates: start: 20150519
  2. ADVIL PM [Suspect]
     Active Substance: DIPHENHYDRAMINE CITRATE\IBUPROFEN
     Indication: DISCOMFORT

REACTIONS (4)
  - Drug ineffective [Recovered/Resolved]
  - Product label issue [Unknown]
  - Product quality issue [Unknown]
  - Muscle spasms [Recovered/Resolved]

NARRATIVE: CASE EVENT DATE: 20150519
